FAERS Safety Report 19575397 (Version 3)
Quarter: 2021Q3

REPORT INFORMATION
  Report Type: Report from Study
  Country: US (occurrence: US)
  Receive Date: 20210719
  Receipt Date: 20210914
  Transmission Date: 20211014
  Serious: Yes (Hospitalization)
  Sender: FDA-Public Use
  Company Number: US-ROCHE-2862659

PATIENT
  Age: 50 Year
  Sex: Male

DRUGS (12)
  1. OBINUTUZUMAB. [Suspect]
     Active Substance: OBINUTUZUMAB
     Indication: CHRONIC LYMPHOCYTIC LEUKAEMIA
     Dosage: OVER 4?6 HOURS ON DAYS 1, 2, 8, AND 15 OF CYCLE 1 AND ON DAY 1 OF CYCLES 2?9?ON 02/JUN/2021, RECEIVE
     Route: 042
  2. ATEZOLIZUMAB. [Suspect]
     Active Substance: ATEZOLIZUMAB
     Indication: CHRONIC LYMPHOCYTIC LEUKAEMIA
     Dosage: ON 03/JUN/2021, RECEIVED LAST DOSE OF ATEZOLIZUMAB
     Route: 041
  3. PROTON PUMP INHIBITORS [Concomitant]
     Active Substance: UNSPECIFIED INGREDIENT
  4. BACTRIM [Concomitant]
     Active Substance: SULFAMETHOXAZOLE\TRIMETHOPRIM
  5. CALCIUM [Concomitant]
     Active Substance: CALCIUM
  6. VORICONAZOLE. [Concomitant]
     Active Substance: VORICONAZOLE
  7. CLOBETASOL 0.05% [Concomitant]
     Active Substance: CLOBETASOL
     Indication: STOMATITIS
  8. VALTREX [Concomitant]
     Active Substance: VALACYCLOVIR HYDROCHLORIDE
  9. VENETOCLAX. [Suspect]
     Active Substance: VENETOCLAX
     Indication: CHRONIC LYMPHOCYTIC LEUKAEMIA
     Route: 048
     Dates: end: 20210602
  10. LEVAQUIN [Concomitant]
     Active Substance: LEVOFLOXACIN
  11. PREDNISONE. [Concomitant]
     Active Substance: PREDNISONE
  12. PROTONIX [Concomitant]
     Active Substance: PANTOPRAZOLE SODIUM

REACTIONS (1)
  - Stomatitis [Recovered/Resolved]

NARRATIVE: CASE EVENT DATE: 20210630
